FAERS Safety Report 21908840 (Version 4)
Quarter: 2023Q2

REPORT INFORMATION
  Report Type: Report from Study
  Country: EG (occurrence: EG)
  Receive Date: 20230125
  Receipt Date: 20230519
  Transmission Date: 20230721
  Serious: Yes (Other)
  Sender: FDA-Public Use
  Company Number: EG-002147023-NVSC2023EG013010

PATIENT
  Age: 49 Year
  Sex: Female

DRUGS (4)
  1. KISQALI [Suspect]
     Active Substance: RIBOCICLIB
     Indication: Breast cancer metastatic
     Dosage: 3 DOSAGE FORM, QD (3 TABLETS PER DAY FOR 3 WEEKS AND 1 WEEK OFF)
     Route: 048
     Dates: start: 202202
  2. FEMARA [Concomitant]
     Active Substance: LETROZOLE
     Indication: Breast cancer metastatic
     Dosage: 1 DOSAGE FORM, QD (1 TABLET PER DAY)
     Route: 065
     Dates: start: 202202
  3. OSTEOCARE [Concomitant]
     Active Substance: CALCIUM\CHOLECALCIFEROL\MAGNESIUM\ZINC
     Indication: Bone disorder
     Dosage: 1 DOSAGE FORM, QD (1 TABLET PER DAY)
     Route: 065
     Dates: start: 202202
  4. XGEVA [Concomitant]
     Active Substance: DENOSUMAB
     Indication: Breast cancer metastatic
     Dosage: 1 DOSAGE FORM, QMO (SUBCUTANEOUS INJECTION)
     Route: 058
     Dates: start: 202202

REACTIONS (3)
  - Pallor [Not Recovered/Not Resolved]
  - Decreased immune responsiveness [Unknown]
  - Haemoglobin abnormal [Unknown]

NARRATIVE: CASE EVENT DATE: 20220201
